FAERS Safety Report 4780530-3 (Version None)
Quarter: 2005Q3

REPORT INFORMATION
  Report Type: 
  Country: None (occurrence: None)
  Receive Date: 20050926
  Receipt Date: 20050913
  Transmission Date: 20060218
  Serious: Yes (Hospitalization, Disabling, Other)
  Sender: FDA-Public Use
  Company Number: 2005127921

PATIENT
  Age: 48 Year
  Sex: Male
  Weight: 90.7194 kg

DRUGS (9)
  1. NORVASC [Suspect]
     Indication: HYPERTENSION
     Dosage: 10 MG (10 MG, 1 IN 1 )
     Dates: start: 20020101
  2. LOTREL [Concomitant]
  3. COREG [Concomitant]
  4. GLYBURIDE (GLYBENCLAMIDE) [Concomitant]
  5. ATENOLOL [Concomitant]
  6. ENALAPRIL MALEATE [Concomitant]
  7. FUROSEMIDE [Concomitant]
  8. PLAVIX [Concomitant]
  9. ZOCOR [Concomitant]

REACTIONS (8)
  - ABASIA [None]
  - AMNESIA [None]
  - CARDIAC PROCEDURE COMPLICATION [None]
  - CORONARY ARTERY OCCLUSION [None]
  - PROCEDURAL PAIN [None]
  - PROCEDURAL SITE REACTION [None]
  - RENAL DISORDER [None]
  - TRANSIENT ISCHAEMIC ATTACK [None]
